FAERS Safety Report 4573621-3 (Version None)
Quarter: 2005Q1

REPORT INFORMATION
  Report Type: 
  Country: None (occurrence: None)
  Receive Date: 20050203
  Receipt Date: 20050121
  Transmission Date: 20050727
  Serious: Yes (Other)
  Sender: FDA-Public Use
  Company Number: 6012280F

PATIENT
  Age: 54 Year
  Sex: Female

DRUGS (5)
  1. NIASPAN [Suspect]
     Indication: HYPERCHOLESTEROLAEMIA
     Dosage: 375 MG QD PO
     Route: 048
     Dates: start: 20041129, end: 20041130
  2. ALBUTEROL [Concomitant]
  3. PIZOTIFEN MALEATE [Concomitant]
  4. CARBIMAZOLE [Concomitant]
  5. SYMBICORT [Concomitant]

REACTIONS (10)
  - ABNORMAL SENSATION IN EYE [None]
  - CHEST DISCOMFORT [None]
  - CHEST PAIN [None]
  - CONJUNCTIVITIS [None]
  - DRY MOUTH [None]
  - GROIN PAIN [None]
  - PARAESTHESIA [None]
  - RASH ERYTHEMATOUS [None]
  - TONGUE OEDEMA [None]
  - TREMOR [None]
